FAERS Safety Report 8332704-2 (Version None)
Quarter: 2012Q2

REPORT INFORMATION
  Report Type: 
  Country: None (occurrence: None)
  Receive Date: 20120503
  Receipt Date: 20120403
  Transmission Date: 20120825
  Serious: No
  Sender: FDA-Public Use
  Company Number: US-MYLANLABS-2012S1004209

PATIENT
  Age: 69 Year
  Sex: Female

DRUGS (7)
  1. MORPHINE SULFATE [Suspect]
     Indication: ARTHRITIS
     Dosage: PRN
     Route: 048
     Dates: start: 20120222, end: 20120222
  2. MORPHINE SULFATE [Suspect]
     Indication: PAIN
     Dosage: PRN
     Route: 048
     Dates: start: 20120222, end: 20120222
  3. VICODIN [Concomitant]
     Dosage: 750MG
  4. MORPHINE SULFATE [Suspect]
     Indication: INTERVERTEBRAL DISC DEGENERATION
     Dosage: PRN
     Route: 048
     Dates: start: 20120222, end: 20120222
  5. LOVASTATIN [Concomitant]
  6. CELEBREX [Concomitant]
  7. BENAZEPRIL HYDROCHLORIDE AND HYDROCHLOROTHIAZIDE [Concomitant]

REACTIONS (2)
  - PAIN [None]
  - DRUG INEFFECTIVE [None]
